FAERS Safety Report 6797002-7 (Version None)
Quarter: 2010Q2

REPORT INFORMATION
  Report Type: 
  Country: None (occurrence: None)
  Receive Date: 20100523
  Receipt Date: 20100609
  Transmission Date: 20101027
  Serious: Yes (Life-Threatening, Hospitalization, Other)
  Sender: FDA-Public Use
  Company Number: A-US2010-36531

PATIENT
  Age: 36 Year
  Sex: Female

DRUGS (3)
  1. TRACLEER [Suspect]
     Indication: PULMONARY ARTERIAL HYPERTENSION
     Dosage: ORAL
     Route: 048
     Dates: start: 20080207
  2. TRACLEER [Suspect]
  3. CALCIUM CHANNEL BLOCKERS [Concomitant]

REACTIONS (5)
  - ABORTION SPONTANEOUS [None]
  - APPARENT LIFE THREATENING EVENT [None]
  - DRUG EXPOSURE DURING PREGNANCY [None]
  - PREGNANCY TEST POSITIVE [None]
  - RESPIRATORY FAILURE [None]
